FAERS Safety Report 4463120-1 (Version None)
Quarter: 2004Q3

REPORT INFORMATION
  Report Type: 
  Country: None (occurrence: None)
  Receive Date: 20040928
  Receipt Date: 20040910
  Transmission Date: 20050211
  Serious: Yes (Other)
  Sender: FDA-Public Use
  Company Number: A03200403165

PATIENT
  Sex: Female

DRUGS (1)
  1. AMBIEN [Suspect]
     Indication: INSOMNIA
     Dosage: 10 MG QOD - ORAL
     Route: 048

REACTIONS (2)
  - INSOMNIA [None]
  - SLEEP APNOEA SYNDROME [None]
